FAERS Safety Report 12728575 (Version 1)
Quarter: 2016Q3

REPORT INFORMATION
  Report Type: Spontaneous
  Country: US (occurrence: US)
  Receive Date: 20160907
  Receipt Date: 20160907
  Transmission Date: 20161109
  Serious: Yes (Hospitalization)
  Sender: FDA-Public Use
  Company Number: None

PATIENT
  Age: 60 Year
  Sex: Female
  Weight: 111.7 kg

DRUGS (3)
  1. BENDAMUSTINE HYDROCHLORIDE. [Suspect]
     Active Substance: BENDAMUSTINE HYDROCHLORIDE
     Dates: end: 20160727
  2. RITUXIMAB (MOAB C2B8 ANTI CD20, CHIMERIC) [Suspect]
     Active Substance: RITUXIMAB
     Dates: end: 20160727
  3. VELCADE [Suspect]
     Active Substance: BORTEZOMIB
     Dates: end: 20160727

REACTIONS (9)
  - Gait disturbance [None]
  - Paraesthesia [None]
  - Rash pruritic [None]
  - Rash generalised [None]
  - Oedema peripheral [None]
  - Asthenia [None]
  - Fatigue [None]
  - Pain [None]
  - Burning sensation [None]

NARRATIVE: CASE EVENT DATE: 20160825
